FAERS Safety Report 16811845 (Version 1)
Quarter: 2019Q3

REPORT INFORMATION
  Report Type: Spontaneous
  Country: US (occurrence: US)
  Receive Date: 20190916
  Receipt Date: 20190916
  Transmission Date: 20191005
  Serious: Yes (Hospitalization, Other)
  Sender: FDA-Public Use
  Company Number: US-NAPPMUNDI-USA-2019-0148235

PATIENT
  Age: 80 Year
  Sex: Female

DRUGS (1)
  1. BUPRENORPHINE (SIMILAR TO NDA 21-306) [Suspect]
     Active Substance: BUPRENORPHINE
     Indication: PAIN
     Dosage: 20 MCG/HR, WEEKLY
     Route: 062

REACTIONS (10)
  - Asthma [Not Recovered/Not Resolved]
  - Detoxification [Unknown]
  - Atrial fibrillation [Unknown]
  - Spinal nerve stimulator implantation [Not Recovered/Not Resolved]
  - Sitting disability [Unknown]
  - Dysstasia [Unknown]
  - Product adhesion issue [Unknown]
  - Heart rate increased [Unknown]
  - Dyspnoea [Not Recovered/Not Resolved]
  - Spinal column injury [Not Recovered/Not Resolved]

NARRATIVE: CASE EVENT DATE: 201908
